FAERS Safety Report 6134983-9 (Version None)
Quarter: 2009Q1

REPORT INFORMATION
  Report Type: 
  Country: None (occurrence: None)
  Receive Date: 20090327
  Receipt Date: 20090317
  Transmission Date: 20090719
  Serious: Yes (Hospitalization)
  Sender: FDA-Public Use
  Company Number: US-JNJFOC-20090203485

PATIENT
  Sex: Female
  Weight: 33 kg

DRUGS (8)
  1. REMICADE [Suspect]
     Dosage: RECIVED 6 INFUSIONS
  2. REMICADE [Suspect]
  3. REMICADE [Suspect]
  4. REMICADE [Suspect]
  5. REMICADE [Suspect]
  6. REMICADE [Suspect]
     Indication: COLITIS ULCERATIVE
  7. PREDNISONE [Concomitant]
  8. ASACOL [Concomitant]

REACTIONS (2)
  - COLECTOMY [None]
  - ILEOSTOMY [None]
